FAERS Safety Report 5367002-2 (Version None)
Quarter: 2007Q2

REPORT INFORMATION
  Report Type: 
  Country: None (occurrence: None)
  Receive Date: 20070619
  Receipt Date: 20070619
  Transmission Date: 20071010
  Serious: Yes (Other)
  Sender: FDA-Public Use
  Company Number: None

PATIENT
  Age: 56 Year
  Sex: Male
  Weight: 143.1 kg

DRUGS (1)
  1. VYTORIN [Suspect]
     Dates: start: 20061106

REACTIONS (1)
  - BLOOD CREATINE PHOSPHOKINASE INCREASED [None]
